FAERS Safety Report 9136530 (Version 1)
Quarter: 2013Q1

REPORT INFORMATION
  Report Type: Report from Study
  Country: US (occurrence: US)
  Receive Date: 20130304
  Receipt Date: 20130304
  Transmission Date: 20140127
  Serious: No
  Sender: FDA-Public Use
  Company Number: US-ABBOTT-12P-163-1017550-00

PATIENT
  Sex: Male

DRUGS (1)
  1. ANDROGEL [Suspect]
     Indication: TESTICULAR FAILURE
     Dosage: 8 PUMP ACTUATIONS DAILY
     Dates: start: 200601

REACTIONS (3)
  - Listless [Unknown]
  - Drug dose omission [Unknown]
  - Activities of daily living impaired [Unknown]
